FAERS Safety Report 10528436 (Version 1)
Quarter: 2014Q4

REPORT INFORMATION
  Report Type: Spontaneous
  Country: US (occurrence: None)
  Receive Date: 20141017
  Receipt Date: 20141017
  Transmission Date: 20150528
  Serious: Yes (Other)
  Sender: FDA-Public Use
  Company Number: None

PATIENT
  Age: 63 Year
  Sex: Male
  Weight: 99.79 kg

DRUGS (1)
  1. AMOX TR-K CLV [Suspect]
     Active Substance: AMOXICILLIN\CLAVULANATE POTASSIUM
     Indication: EAR INFECTION
     Dosage: 10 PILLS, TAKEN BY MOUTH
     Dates: start: 20140906, end: 20140916

REACTIONS (10)
  - Bile duct obstruction [None]
  - Malaise [None]
  - Faeces discoloured [None]
  - Blood bilirubin increased [None]
  - Autoimmune disorder [None]
  - Lethargy [None]
  - Aspartate aminotransferase increased [None]
  - Pruritus generalised [None]
  - Alanine aminotransferase increased [None]
  - Urine abnormality [None]

NARRATIVE: CASE EVENT DATE: 20140921
